FAERS Safety Report 4881870-X (Version None)
Quarter: 2006Q1

REPORT INFORMATION
  Report Type: 
  Country: None (occurrence: None)
  Receive Date: 20060112
  Receipt Date: 20060112
  Transmission Date: 20060701
  Serious: Yes (Hospitalization)
  Sender: FDA-Public Use
  Company Number: None

PATIENT
  Age: 66 Year
  Sex: Male

DRUGS (10)
  1. DOCETAXEL [Suspect]
     Dosage: 65 MG/M2 IV
     Route: 042
     Dates: start: 20051011
  2. DOCETAXEL [Suspect]
     Dosage: 65 MG/M2 IV
     Route: 042
     Dates: start: 20051101
  3. DOCETAXEL [Suspect]
     Dosage: 65 MG/M2 IV
     Route: 042
     Dates: start: 20051122
  4. KETOCONAZOLE [Suspect]
     Dosage: 400 MG PO BID
     Route: 048
     Dates: start: 20051011, end: 20051229
  5. KETOCONAZOLE [Suspect]
     Dosage: 400 MG PO BID
     Route: 048
     Dates: start: 20051206
  6. ATENOLOL [Concomitant]
  7. FELODIPINE [Concomitant]
  8. DEXAMETHASONE TAB [Concomitant]
  9. DOCETAXEL [Concomitant]
  10. HYDROCORTISONE [Concomitant]

REACTIONS (11)
  - BLOOD BILIRUBIN INCREASED [None]
  - BLOOD UREA INCREASED [None]
  - CELLULITIS [None]
  - DECREASED APPETITE [None]
  - DIARRHOEA [None]
  - DRY SKIN [None]
  - FATIGUE [None]
  - NEUTROPENIA [None]
  - SKIN ULCER [None]
  - TACHYCARDIA [None]
  - VISION BLURRED [None]
